FAERS Safety Report 5588551-8 (Version None)
Quarter: 2007Q4

REPORT INFORMATION
  Report Type: 
  Country: None (occurrence: None)
  Receive Date: 20071212
  Receipt Date: 20070828
  Transmission Date: 20080405
  Serious: No
  Sender: FDA-Public Use
  Company Number: 2007RL000384

PATIENT
  Age: 73 Year
  Sex: Male

DRUGS (3)
  1. LOVAZA [Suspect]
     Indication: DRUG USE FOR UNKNOWN INDICATION
     Dosage: 4 GM;QD;PO
     Route: 048
     Dates: start: 20070111, end: 20070301
  2. VASOTEC [Concomitant]
  3. ANAPROX [Concomitant]

REACTIONS (3)
  - ABNORMAL FAECES [None]
  - HAEMOGLOBIN DECREASED [None]
  - INVESTIGATION ABNORMAL [None]
